FAERS Safety Report 7297892-8 (Version None)
Quarter: 2011Q1

REPORT INFORMATION
  Report Type: 
  Country: None (occurrence: None)
  Receive Date: 20110217
  Receipt Date: 20101213
  Transmission Date: 20110831
  Serious: No
  Sender: FDA-Public Use
  Company Number: US-KINGPHARMUSA00001-K201001509

PATIENT
  Age: 59 Year
  Sex: Female

DRUGS (8)
  1. PROVIGIL [Concomitant]
  2. TRAZODONE [Concomitant]
  3. BACLOFEN [Concomitant]
  4. MORPHINE [Concomitant]
     Dosage: 100 MG, UNK
  5. CHLORZOXAZONE [Concomitant]
  6. NEXIUM [Concomitant]
  7. VENLAFAXINE [Concomitant]
     Indication: DEPRESSION
  8. FLECTOR [Suspect]
     Indication: PAIN IN EXTREMITY
     Dosage: 2 PATCHES, Q12H
     Route: 061
     Dates: start: 20101201, end: 20101211

REACTIONS (5)
  - FOAMING AT MOUTH [None]
  - OEDEMA PERIPHERAL [None]
  - NAUSEA [None]
  - ABDOMINAL PAIN UPPER [None]
  - DYSGEUSIA [None]
